FAERS Safety Report 6906830-6 (Version None)
Quarter: 2010Q3

REPORT INFORMATION
  Report Type: 
  Country: None (occurrence: None)
  Receive Date: 20100804
  Receipt Date: 20100723
  Transmission Date: 20110219
  Serious: Yes (Hospitalization, Other)
  Sender: FDA-Public Use
  Company Number: US-ELI_LILLY_AND_COMPANY-US200910005574

PATIENT
  Sex: Male
  Weight: 113.38 kg

DRUGS (4)
  1. BYETTA [Suspect]
     Dosage: UNK, UNKNOWN
     Route: 065
     Dates: start: 20050928, end: 20080101
  2. GLUCOVANCE [Concomitant]
     Indication: DIABETES MELLITUS
     Dosage: UNK, DAILY (1/D)
  3. TUMS [Concomitant]
     Indication: DYSPEPSIA
     Dosage: UNK, AS NEEDED
  4. TYLENOL                                 /SCH/ [Concomitant]
     Dosage: UNK, AS NEEDED

REACTIONS (3)
  - BLOOD GLUCOSE FLUCTUATION [None]
  - PANCREATIC INJURY [None]
  - PANCREATITIS ACUTE [None]
